FAERS Safety Report 8639593 (Version 7)
Quarter: 2013Q1

REPORT INFORMATION
  Report Type: Report from Study
  Country: AU (occurrence: AU)
  Receive Date: 20120627
  Receipt Date: 20130307
  Transmission Date: 20140127
  Serious: Yes (Hospitalization, Other)
  Sender: FDA-Public Use
  Company Number: AU-ROCHE-1061513

PATIENT
  Age: 64 Year
  Sex: Female

DRUGS (3)
  1. ACTEMRA [Suspect]
     Indication: RHEUMATOID ARTHRITIS
     Route: 065
  2. ACTEMRA [Suspect]
     Route: 042
     Dates: start: 20101006
  3. ACTEMRA [Suspect]
     Route: 065
     Dates: start: 20120521

REACTIONS (15)
  - Muscle rupture [Not Recovered/Not Resolved]
  - Arthritis infective [Not Recovered/Not Resolved]
  - Malaise [Not Recovered/Not Resolved]
  - Cellulitis [Not Recovered/Not Resolved]
  - Wound [Not Recovered/Not Resolved]
  - Local swelling [Not Recovered/Not Resolved]
  - Musculoskeletal pain [Unknown]
  - Tendon rupture [Unknown]
  - Contusion [Unknown]
  - Wound [Not Recovered/Not Resolved]
  - Hyperkeratosis [Not Recovered/Not Resolved]
  - Back pain [Not Recovered/Not Resolved]
  - Fall [Not Recovered/Not Resolved]
  - Dislocation of vertebra [Unknown]
  - Unevaluable event [Not Recovered/Not Resolved]
